FAERS Safety Report 6783550-2 (Version None)
Quarter: 2010Q2

REPORT INFORMATION
  Report Type: 
  Country: None (occurrence: None)
  Receive Date: 20100622
  Receipt Date: 20100614
  Transmission Date: 20101027
  Serious: Yes (Other)
  Sender: FDA-Public Use
  Company Number: FR-PFIZER INC-2010012586

PATIENT
  Age: 70 Year
  Sex: Male

DRUGS (6)
  1. TAHOR [Suspect]
     Indication: LOW DENSITY LIPOPROTEIN
     Dosage: 20 MG, 1X/DAY
     Dates: start: 20090101
  2. MODAMIDE [Concomitant]
     Indication: HYPERTENSION
     Dosage: UNK
  3. LOXEN [Concomitant]
     Indication: HYPERTENSION
     Dosage: UNK
  4. RAMIPRIL/HYDROCHLOROTHIAZIDE [Concomitant]
     Indication: HYPERTENSION
     Dosage: UNK
  5. RILMENIDINE [Concomitant]
     Indication: HYPERTENSION
     Dosage: UNK
  6. HYDREA [Concomitant]
     Indication: ESSENTIAL THROMBOCYTHAEMIA

REACTIONS (2)
  - DIABETES MELLITUS INADEQUATE CONTROL [None]
  - HYPERGLYCAEMIA [None]
